FAERS Safety Report 16164368 (Version 1)
Quarter: 2019Q2

REPORT INFORMATION
  Report Type: Spontaneous
  Country: US (occurrence: US)
  Receive Date: 20190405
  Receipt Date: 20190405
  Transmission Date: 20190711
  Serious: Yes (Life-Threatening)
  Sender: FDA-Public Use
  Company Number: US-009507513-1904USA000016

PATIENT
  Age: 65 Year
  Sex: Female

DRUGS (3)
  1. BENICAR [Concomitant]
     Active Substance: OLMESARTAN MEDOXOMIL
  2. PRINIVIL [Suspect]
     Active Substance: LISINOPRIL
  3. COZAAR [Suspect]
     Active Substance: LOSARTAN POTASSIUM
     Indication: BLOOD PRESSURE MEASUREMENT
     Dosage: UNK
     Route: 048
     Dates: start: 2017

REACTIONS (4)
  - Rash [Recovered/Resolved]
  - Visual impairment [Recovered/Resolved]
  - Throat tightness [Recovered/Resolved]
  - Formication [Recovered/Resolved]

NARRATIVE: CASE EVENT DATE: 2017
